FAERS Safety Report 23251702 (Version 2)
Quarter: 2023Q4

REPORT INFORMATION
  Report Type: Report from Study
  Country: DE (occurrence: DE)
  Receive Date: 20231201
  Receipt Date: 20231219
  Transmission Date: 20240110
  Serious: Yes (Hospitalization)
  Sender: FDA-Public Use
  Company Number: DE-SPRINGWORKS THERAPEUTICS-SW-001111

PATIENT
  Age: 48 Year
  Sex: Female
  Weight: 55 kg

DRUGS (3)
  1. NIROGACESTAT [Suspect]
     Active Substance: NIROGACESTAT
     Indication: Desmoid tumour
     Dosage: 150 MILLIGRAM IN AM, 150 MG IN PM
     Route: 048
     Dates: start: 20230814, end: 20230822
  2. NIROGACESTAT [Suspect]
     Active Substance: NIROGACESTAT
     Dosage: 150 MG IN AM, 100 MG IN PM
     Route: 048
     Dates: start: 20230823, end: 20230823
  3. NIROGACESTAT [Suspect]
     Active Substance: NIROGACESTAT
     Dosage: 100 MG IN AM, 50 MG IN PM
     Dates: start: 20230824, end: 20230824

REACTIONS (4)
  - Drug eruption [Recovered/Resolved]
  - Nausea [Recovered/Resolved]
  - Pyrexia [Recovered/Resolved]
  - Stomatitis [Recovered/Resolved]

NARRATIVE: CASE EVENT DATE: 20230820
